FAERS Safety Report 7805781 (Version 17)
Quarter: 2016Q2

REPORT INFORMATION
  Report Type: Report from Study
  Country: JP (occurrence: JP)
  Receive Date: 20110209
  Receipt Date: 20160509
  Transmission Date: 20160815
  Serious: Yes (Hospitalization, Other)
  Sender: FDA-Public Use
  Company Number: PHHO2011JP02399

PATIENT
  Age: 78 Year
  Sex: Male
  Weight: 60 kg

DRUGS (52)
  1. EPLERENONE. [Concomitant]
     Active Substance: EPLERENONE
     Indication: CARDIAC FAILURE CHRONIC
     Dosage: 100 MG, QD
     Route: 048
     Dates: start: 20100617
  2. NAUZELIN [Concomitant]
     Active Substance: DOMPERIDONE
     Dosage: 20 MG, QD
     Route: 048
     Dates: start: 20120925, end: 20121005
  3. PLETAAL [Concomitant]
     Active Substance: CILOSTAZOL
     Indication: CEREBRAL ARTERY EMBOLISM
     Dosage: 100 MG, QD
     Route: 048
     Dates: start: 20100210
  4. XARELTO [Concomitant]
     Active Substance: RIVAROXABAN
     Indication: CEREBRAL ARTERY EMBOLISM
     Dosage: 10 MG, QD
     Route: 048
     Dates: start: 20120720, end: 20121006
  5. MUCOSTA [Concomitant]
     Active Substance: REBAMIPIDE
     Dosage: 200 MG, QD
     Route: 048
     Dates: start: 20120925, end: 20121005
  6. EPLERENONE. [Concomitant]
     Active Substance: EPLERENONE
     Dosage: 50 MG, QD
     Route: 048
     Dates: start: 20110317
  7. SOLANAX [Concomitant]
     Active Substance: ALPRAZOLAM
     Dosage: 0.4 MG, QD
     Route: 048
     Dates: start: 20110219, end: 20120914
  8. WARFARIN [Suspect]
     Active Substance: WARFARIN
     Dosage: 2 MG, DAILY
     Route: 048
     Dates: start: 20110303
  9. THYRADIN [Concomitant]
     Active Substance: LEVOTHYROXINE
     Dosage: 150 UG, DAILY
     Route: 048
     Dates: start: 20120715, end: 20120914
  10. TAKEPRON [Concomitant]
     Active Substance: LANSOPRAZOLE
     Dosage: 15 MG, QD
     Route: 048
     Dates: start: 20120926
  11. CEPHADOL [Concomitant]
     Active Substance: DIPHENIDOL HYDROCHLORIDE
     Indication: DIZZINESS
     Dosage: 50 MG, QD
     Route: 048
     Dates: start: 20090409, end: 20120914
  12. TRAVATAN Z [Concomitant]
     Active Substance: TRAVOPROST
     Indication: GLAUCOMA
     Dosage: 1 DF, UNK
     Route: 031
     Dates: start: 20100513
  13. ALISKIREN [Suspect]
     Active Substance: ALISKIREN
     Dosage: 300 MG
     Route: 048
     Dates: start: 20110630, end: 20120801
  14. ENALAPRIL [Suspect]
     Active Substance: ENALAPRIL
     Dosage: 5 MG, BID
     Route: 048
     Dates: start: 20110127, end: 20110210
  15. WARFARIN [Suspect]
     Active Substance: WARFARIN
     Dosage: 0.75 MG, DAILY
     Route: 048
     Dates: start: 20110214, end: 20110302
  16. WARFARIN [Suspect]
     Active Substance: WARFARIN
     Dosage: 1 MG, DAILY
     Route: 048
     Dates: start: 20110329
  17. LASIX [Concomitant]
     Active Substance: FUROSEMIDE
     Dosage: 20 MG, QD
     Route: 048
  18. EPLERENONE. [Concomitant]
     Active Substance: EPLERENONE
     Dosage: 25 MG, QD
     Route: 048
     Dates: start: 20120727
  19. THYRADIN [Concomitant]
     Active Substance: LEVOTHYROXINE
     Dosage: 150 UG, DAILY
     Route: 048
     Dates: start: 20120925
  20. CEPHADOL [Concomitant]
     Active Substance: DIPHENIDOL HYDROCHLORIDE
     Dosage: 50 MG, QD
     Route: 048
     Dates: start: 20121016
  21. SOLANAX [Concomitant]
     Active Substance: ALPRAZOLAM
     Indication: INSOMNIA
     Dosage: 0.4 MG, QD
     Route: 048
     Dates: start: 20091119
  22. ANCARON [Concomitant]
     Active Substance: AMIODARONE HYDROCHLORIDE
     Indication: VENTRICULAR FIBRILLATION
     Dosage: 200 MG, UNK
     Route: 048
     Dates: start: 20080206
  23. DIART [Concomitant]
     Active Substance: AZOSEMIDE
     Indication: CARDIAC FAILURE CHRONIC
     Dosage: 30 MG, QD
     Route: 048
     Dates: start: 20120210, end: 20120723
  24. ARICEPT [Concomitant]
     Active Substance: DONEPEZIL HYDROCHLORIDE
     Indication: QUALITY OF LIFE DECREASED
     Dosage: 5 MG, QD
     Route: 048
     Dates: start: 20120224, end: 20120914
  25. DETANTOL [Concomitant]
     Indication: PRODUCT USED FOR UNKNOWN INDICATION
     Dosage: UNK
     Route: 047
     Dates: start: 20110825
  26. PLETAAL [Concomitant]
     Active Substance: CILOSTAZOL
     Dosage: 100 MG, QD
     Route: 048
     Dates: start: 20121013
  27. ALISKIREN [Suspect]
     Active Substance: ALISKIREN
     Indication: CARDIAC FAILURE CHRONIC
     Dosage: 300 MG
     Route: 048
     Dates: start: 20110127, end: 20110210
  28. CEPHADOL [Concomitant]
     Active Substance: DIPHENIDOL HYDROCHLORIDE
     Dosage: 50 MG, QD
     Route: 048
     Dates: start: 20120925, end: 20121005
  29. DABIGATRAN ETEXILATE [Concomitant]
     Active Substance: DABIGATRAN ETEXILATE
     Indication: CEREBRAL ARTERY EMBOLISM
     Dosage: 150 MG, UNK
     Route: 048
     Dates: start: 20120524
  30. PLETAAL [Concomitant]
     Active Substance: CILOSTAZOL
     Dosage: 100 MG, QD
     Route: 048
     Dates: start: 20110420, end: 20121006
  31. XARELTO [Concomitant]
     Active Substance: RIVAROXABAN
     Dosage: 10 MG, QD
     Route: 048
     Dates: start: 20121013
  32. ALPHAGAN P [Concomitant]
     Active Substance: BRIMONIDINE TARTRATE
     Indication: GLAUCOMA
     Dosage: 2 DF, UNK
     Route: 047
     Dates: start: 20120903
  33. ALISKIREN [Suspect]
     Active Substance: ALISKIREN
     Indication: CARDIAC FAILURE
     Dosage: 150 MG, QD (RUN IN PHASE)
     Route: 048
     Dates: start: 20110107, end: 20110126
  34. ENALAPRIL [Suspect]
     Active Substance: ENALAPRIL
     Dosage: 10 MG, QD (RUN IN PHASE)
     Route: 048
     Dates: start: 20110106
  35. WARFARIN [Suspect]
     Active Substance: WARFARIN
     Indication: CEREBRAL ARTERY EMBOLISM
     Dosage: 1.75 MG, DAILY
     Route: 048
     Dates: start: 20100128, end: 20110129
  36. LASIX [Concomitant]
     Active Substance: FUROSEMIDE
     Indication: CARDIAC FAILURE CHRONIC
     Dosage: 40 MG, QD
     Route: 048
     Dates: start: 20100501
  37. ARTIST [Concomitant]
     Active Substance: CARVEDILOL
     Indication: CARDIAC FAILURE CHRONIC
     Dosage: 5 MG, QD
     Route: 048
     Dates: start: 20100210
  38. SENNOSIDE [Concomitant]
     Active Substance: SENNOSIDES
     Dosage: 36 MG, QD
     Route: 048
     Dates: start: 20121025
  39. HEPARIN CALCIUM [Concomitant]
     Active Substance: HEPARIN CALCIUM
     Indication: PRODUCT USED FOR UNKNOWN INDICATION
     Route: 065
  40. ENALAPRIL [Suspect]
     Active Substance: ENALAPRIL
     Indication: CARDIAC FAILURE
     Dosage: 10 MG, QD (RUN IN PHASE)
     Route: 048
     Dates: start: 20101112, end: 20101209
  41. ENALAPRIL [Suspect]
     Active Substance: ENALAPRIL
     Dosage: 20 MG, QD (RUN IN PHASE)
     Route: 048
     Dates: start: 20101210, end: 20110105
  42. ENALAPRIL [Suspect]
     Active Substance: ENALAPRIL
     Dosage: 5 MG, BID
     Route: 048
     Dates: start: 20110630, end: 20120801
  43. THYRADIN [Concomitant]
     Active Substance: LEVOTHYROXINE
     Indication: HYPOTHYROIDISM
     Dosage: 100 UG, UNK
     Route: 048
     Dates: start: 20100506
  44. TAKEPRON [Concomitant]
     Active Substance: LANSOPRAZOLE
     Indication: GASTRITIS PROPHYLAXIS
     Dosage: 15 MG, QD
     Route: 048
     Dates: start: 20080205, end: 20120913
  45. AZOPT [Concomitant]
     Active Substance: BRINZOLAMIDE
     Indication: GLAUCOMA
     Dosage: 3 DF, UNK
     Route: 031
     Dates: start: 20100202
  46. ARICEPT [Concomitant]
     Active Substance: DONEPEZIL HYDROCHLORIDE
     Indication: CEREBROVASCULAR DISORDER
     Dosage: 5 MG, QD
     Route: 048
     Dates: start: 20120926, end: 20121005
  47. NAUZELIN [Concomitant]
     Active Substance: DOMPERIDONE
     Indication: DECREASED APPETITE
     Dosage: 20 MG, QD
     Route: 048
     Dates: start: 20120719, end: 20120914
  48. KALGUT [Concomitant]
     Active Substance: DENOPAMINE
     Indication: FLUID REPLACEMENT
     Dosage: 20 MG, UNK
     Route: 048
     Dates: start: 20120801
  49. MUCOSTA [Concomitant]
     Active Substance: REBAMIPIDE
     Indication: DECREASED APPETITE
     Dosage: 200 MG, QD
     Route: 048
     Dates: start: 20120719, end: 20120914
  50. WARFARIN [Suspect]
     Active Substance: WARFARIN
     Dosage: 0.75 MG, DAILY
     Route: 048
     Dates: start: 20110130
  51. SENNOSIDE [Concomitant]
     Active Substance: SENNOSIDES
     Indication: CONSTIPATION
     Dosage: 36 MG, UNK
     Route: 048
     Dates: start: 20080529, end: 20120914
  52. DIART [Concomitant]
     Active Substance: AZOSEMIDE
     Dosage: 15 MG, QD
     Route: 048
     Dates: start: 20120725

REACTIONS (21)
  - Streptococcal infection [Recovered/Resolved]
  - Arthralgia [Recovered/Resolved]
  - Chills [Recovered/Resolved]
  - Asthenia [Recovered/Resolved]
  - Blood urea increased [Recovered/Resolved]
  - Renal impairment [Unknown]
  - Decreased appetite [Recovered/Resolved]
  - Coagulopathy [Unknown]
  - Dehydration [Recovered/Resolved]
  - Cholangitis [Recovered/Resolved]
  - Cholangitis [Recovered/Resolved]
  - Cholangitis [Recovered/Resolved]
  - Pseudomembranous colitis [Recovered/Resolved]
  - Headache [Recovered/Resolved]
  - Acute kidney injury [Recovered/Resolved]
  - Blood creatinine increased [Recovered/Resolved]
  - Pyelonephritis acute [Recovered/Resolved]
  - Dysuria [Recovered/Resolved]
  - Abdominal pain [Recovered/Resolved]
  - Urinary tract infection [Recovered/Resolved]
  - Cardiac failure [Recovered/Resolved]

NARRATIVE: CASE EVENT DATE: 20110128
